FAERS Safety Report 8792961 (Version 2)
Quarter: 2012Q4

REPORT INFORMATION
  Report Type: Report from Study
  Country: None (occurrence: US)
  Receive Date: 20120918
  Receipt Date: 20121010
  Transmission Date: 20130627
  Serious: Yes (Hospitalization, Other)
  Sender: FDA-Public Use
  Company Number: US-ABBOTT-12P-163-0979235-00

PATIENT
  Age: 32 Year
  Sex: Female
  Weight: 84.9 kg

DRUGS (22)
  1. HUMIRA PEN [Suspect]
     Indication: CROHN^S DISEASE
     Dates: start: 201002, end: 201012
  2. HUMIRA PEN [Suspect]
     Dates: end: 20120928
  3. PREDNISONE [Concomitant]
     Indication: PRODUCT USED FOR UNKNOWN INDICATION
  4. TRAZODONE [Concomitant]
     Indication: INSOMNIA
     Dosage: 100 - 150 mg HS PRN
  5. CELEXA [Concomitant]
     Indication: DEPRESSION
  6. VERAPAMIL [Concomitant]
     Indication: MIGRAINE PROPHYLAXIS
  7. GABAPENTIN [Concomitant]
     Indication: MIGRAINE
  8. GABAPENTIN [Concomitant]
     Indication: RESTLESS LEGS SYNDROME
  9. CARBIDOPA/LEVODOPA [Concomitant]
     Indication: RESTLESS LEGS SYNDROME
  10. ADDERALL [Concomitant]
     Indication: ATTENTION DEFICIT/HYPERACTIVITY DISORDER
  11. XANAX [Concomitant]
     Indication: ANXIETY
  12. DEPO PROVERA [Concomitant]
     Indication: CONTRACEPTION
  13. ZYRTEC [Concomitant]
     Indication: HYPERSENSITIVITY
  14. SUDAFED OVER THE COUNTER [Concomitant]
     Indication: HYPERSENSITIVITY
  15. BENADRYL OVER THE COUNTER [Concomitant]
     Indication: HYPERSENSITIVITY
  16. VIT D2 [Concomitant]
     Indication: PRODUCT USED FOR UNKNOWN INDICATION
  17. VIT D3 [Concomitant]
     Indication: PRODUCT USED FOR UNKNOWN INDICATION
  18. MELATONIN [Concomitant]
     Indication: INSOMNIA
  19. CALCIUM OVER THE COUNTER [Concomitant]
     Indication: PRODUCT USED FOR UNKNOWN INDICATION
  20. COMPAZINE [Concomitant]
     Indication: NAUSEA
  21. ZOFRAN [Concomitant]
     Indication: NAUSEA
  22. OXYCODONE [Concomitant]
     Indication: PAIN

REACTIONS (16)
  - Asthenia [Unknown]
  - Sepsis [Unknown]
  - Pneumonia bacterial [Unknown]
  - Pyrexia [Unknown]
  - Device related infection [Unknown]
  - Infection [Not Recovered/Not Resolved]
  - Gastrointestinal stoma complication [Unknown]
  - Headache [Not Recovered/Not Resolved]
  - Fatigue [Not Recovered/Not Resolved]
  - Stomatitis [Not Recovered/Not Resolved]
  - Abdominal pain [Not Recovered/Not Resolved]
  - Decreased appetite [Not Recovered/Not Resolved]
  - Fatigue [Not Recovered/Not Resolved]
  - General physical health deterioration [Not Recovered/Not Resolved]
  - Nausea [Not Recovered/Not Resolved]
  - Diarrhoea [Not Recovered/Not Resolved]
